FAERS Safety Report 6286396-7 (Version None)
Quarter: 2009Q3

REPORT INFORMATION
  Report Type: 
  Country: None (occurrence: None)
  Receive Date: 20090728
  Receipt Date: 20090714
  Transmission Date: 20100115
  Serious: Yes (Hospitalization)
  Sender: FDA-Public Use
  Company Number: AU-GENENTECH-287203

PATIENT
  Sex: Female

DRUGS (2)
  1. BEVACIZUMAB [Suspect]
     Indication: COLORECTAL CANCER
     Dosage: 362 MG, Q3W
     Route: 042
     Dates: start: 20080811
  2. CAPECITABINE [Suspect]
     Indication: COLORECTAL CANCER
     Dosage: 3500 MG, BID
     Route: 048
     Dates: start: 20080811

REACTIONS (1)
  - ATRIAL FIBRILLATION [None]
